FAERS Safety Report 18620522 (Version 1)
Quarter: 2020Q4

REPORT INFORMATION
  Report Type: Spontaneous
  Country: IN (occurrence: IN)
  Receive Date: 20201216
  Receipt Date: 20201216
  Transmission Date: 20210114
  Serious: Yes (Other)
  Sender: FDA-Public Use
  Company Number: IN-LUPIN LIMITED-2020-10465

PATIENT
  Age: 6 Year
  Sex: Male

DRUGS (1)
  1. IMATINIB MESYLATE. [Suspect]
     Active Substance: IMATINIB MESYLATE
     Indication: CHRONIC MYELOID LEUKAEMIA
     Dosage: 300 MILLIGRAM/SQ. METER
     Route: 065

REACTIONS (4)
  - Treatment noncompliance [Unknown]
  - Skin exfoliation [Recovered/Resolved]
  - Drug intolerance [Unknown]
  - Rash maculo-papular [Recovered/Resolved]
